FAERS Safety Report 8593391 (Version 3)
Quarter: 2014Q1

REPORT INFORMATION
  Report Type: Spontaneous
  Country: US (occurrence: US)
  Receive Date: 20120604
  Receipt Date: 20140108
  Transmission Date: 20141002
  Serious: Yes (Hospitalization, Disabling)
  Sender: FDA-Public Use
  Company Number: US-ASTRAZENECA-2012SE34920

PATIENT
  Age: 49 Year
  Sex: Female
  Weight: 69.9 kg

DRUGS (10)
  1. NEXIUM [Suspect]
     Indication: GASTROOESOPHAGEAL REFLUX DISEASE
     Route: 048
     Dates: start: 20030501
  2. NEXIUM [Suspect]
     Indication: GASTROOESOPHAGEAL REFLUX DISEASE
     Route: 048
     Dates: start: 200305, end: 200503
  3. AMLODIPINE [Concomitant]
  4. SINGULAIR [Concomitant]
  5. DIOVAN [Concomitant]
  6. VITAMIN D3 [Concomitant]
  7. FLAXSEED OIL [Concomitant]
  8. VITAMIN C [Concomitant]
  9. FISH OIL/ OMEGA 3 [Concomitant]
  10. LORTAB [Concomitant]
     Indication: PAIN
     Dosage: 10/500 EVERY EIGHT HRS
     Route: 048
     Dates: start: 20130702

REACTIONS (14)
  - Blindness [Unknown]
  - Osteoarthritis [Unknown]
  - Osteoporosis [Unknown]
  - Multiple fractures [Unknown]
  - Arthritis [Unknown]
  - Glucose tolerance impaired [Unknown]
  - Back pain [Unknown]
  - Arthralgia [Unknown]
  - Rotator cuff syndrome [Unknown]
  - Spinal pain [Unknown]
  - Carpal tunnel syndrome [Unknown]
  - Exostosis [Unknown]
  - Musculoskeletal pain [Unknown]
  - Depression [Unknown]
